FAERS Safety Report 8222932-9 (Version None)
Quarter: 2012Q1

REPORT INFORMATION
  Report Type: 
  Country: None (occurrence: None)
  Receive Date: 20120320
  Receipt Date: 20120312
  Transmission Date: 20120608
  Serious: Yes (Hospitalization)
  Sender: FDA-Public Use
  Company Number: PHHY2012GR022191

PATIENT
  Sex: Female

DRUGS (1)
  1. GILENYA [Suspect]
     Dosage: UNK

REACTIONS (4)
  - VISUAL ACUITY REDUCED [None]
  - MIGRAINE [None]
  - EYE PAIN [None]
  - PARAESTHESIA [None]
